FAERS Safety Report 6443351-1 (Version None)
Quarter: 2009Q4

REPORT INFORMATION
  Report Type: 
  Country: None (occurrence: None)
  Receive Date: 20091117
  Receipt Date: 20091109
  Transmission Date: 20100525
  Serious: Yes (Congenital Anomaly)
  Sender: FDA-Public Use
  Company Number: JP-MERCK-0911USA01962

PATIENT

DRUGS (1)
  1. PROPECIA [Suspect]
     Route: 048

REACTIONS (2)
  - HEART DISEASE CONGENITAL [None]
  - PATERNAL DRUGS AFFECTING FOETUS [None]
